FAERS Safety Report 8495974-6 (Version None)
Quarter: 2012Q2

REPORT INFORMATION
  Report Type: 
  Country: None (occurrence: None)
  Receive Date: 20120629
  Receipt Date: 20120618
  Transmission Date: 20120825
  Serious: Yes (Hospitalization)
  Sender: FDA-Public Use
  Company Number: AUR-APL-2012-02784

PATIENT
  Age: 8 Year
  Sex: Male
  Weight: 48 kg

DRUGS (4)
  1. MERCAPTOPURINE [Concomitant]
  2. METHOTREXATE SODIUM [Concomitant]
  3. ONDANSETRON [Suspect]
     Indication: PRODUCT USED FOR UNKNOWN INDICATION
     Dosage: *8 MG, 3 TIMES DAILY AS NEEDED), ORAL (15 DOSAGE FORMS), ORAL
     Route: 048
  4. BACTRIM [Concomitant]

REACTIONS (5)
  - INTENTIONAL OVERDOSE [None]
  - VOMITING [None]
  - ANAEMIA MACROCYTIC [None]
  - HYPOTENSION [None]
  - WHITE BLOOD CELL COUNT DECREASED [None]
